FAERS Safety Report 19981075 (Version 3)
Quarter: 2021Q4

REPORT INFORMATION
  Report Type: Spontaneous
  Country: CA (occurrence: CA)
  Receive Date: 20211021
  Receipt Date: 20211202
  Transmission Date: 20220303
  Serious: Yes (Other)
  Sender: FDA-Public Use
  Company Number: CA-PFIZER INC-202101301502

PATIENT
  Age: 64 Year
  Sex: Female

DRUGS (3)
  1. BRAFTOVI [Suspect]
     Active Substance: ENCORAFENIB
     Indication: Colorectal cancer metastatic
     Dosage: 300 MG, DAILY
     Route: 048
     Dates: start: 20210928
  2. BRAFTOVI [Suspect]
     Active Substance: ENCORAFENIB
     Dosage: 225 MG
  3. MAGNESIUM [Concomitant]
     Active Substance: MAGNESIUM
     Dosage: UNK

REACTIONS (15)
  - Thrombosis [Unknown]
  - Haemoptysis [Unknown]
  - Abdominal discomfort [Unknown]
  - Tremor [Unknown]
  - Vision blurred [Unknown]
  - Headache [Unknown]
  - Pyrexia [Unknown]
  - Chills [Unknown]
  - Epistaxis [Unknown]
  - Fatigue [Unknown]
  - Aphthous ulcer [Unknown]
  - Dysphonia [Unknown]
  - Fungal infection [Recovering/Resolving]
  - Pigmentation disorder [Unknown]
  - Neoplasm progression [Unknown]
